FAERS Safety Report 7552194-7 (Version None)
Quarter: 2011Q2

REPORT INFORMATION
  Report Type: 
  Country: None (occurrence: None)
  Receive Date: 20110616
  Receipt Date: 20110613
  Transmission Date: 20111010
  Serious: Yes (Other)
  Sender: FDA-Public Use
  Company Number: GB-MERCK-1101GBR00115

PATIENT
  Age: 50 Year
  Sex: Female

DRUGS (7)
  1. FLUTICASONE PROPIONATE AND SALMETEROL XINAFOATE [Concomitant]
     Route: 065
  2. BENDROFLUMETHIAZIDE [Concomitant]
     Route: 065
  3. ZOCOR [Suspect]
     Indication: DIABETES MELLITUS
     Route: 048
     Dates: start: 20101008, end: 20101104
  4. AMLODIPINE [Concomitant]
     Route: 065
  5. RAMIPRIL [Concomitant]
     Route: 065
  6. ALBUTEROL SULFATE [Concomitant]
     Route: 065
  7. METFORMIN [Concomitant]
     Route: 065

REACTIONS (1)
  - VISUAL ACUITY REDUCED [None]
